FAERS Safety Report 9054651 (Version 1)
Quarter: 2013Q1

REPORT INFORMATION
  Report Type: Spontaneous
  Country: FR (occurrence: FR)
  Receive Date: 20130208
  Receipt Date: 20130208
  Transmission Date: 20140127
  Serious: Yes (Hospitalization)
  Sender: FDA-Public Use
  Company Number: FR-BRISTOL-MYERS SQUIBB COMPANY-17289232

PATIENT
  Age: 61 Year
  Sex: Female

DRUGS (11)
  1. COUMADINE [Suspect]
     Indication: PULMONARY EMBOLISM
  2. CALCIPARINE [Suspect]
     Indication: PULMONARY EMBOLISM
     Dosage: INTER:08DEC2012
  3. CELLCEPT [Concomitant]
  4. AMLOR [Concomitant]
  5. ATENOLOL [Concomitant]
  6. CRESTOR [Concomitant]
  7. CALCIDOSE [Concomitant]
  8. NEORAL [Concomitant]
  9. PARIET [Concomitant]
  10. SPASFON [Concomitant]
  11. ALFACALCIDOL [Concomitant]

REACTIONS (3)
  - Muscle haemorrhage [Recovered/Resolved with Sequelae]
  - Anaemia [Recovered/Resolved]
  - Peripheral artery dissection [Recovered/Resolved with Sequelae]
